FAERS Safety Report 16434335 (Version 3)
Quarter: 2019Q4

REPORT INFORMATION
  Report Type: Spontaneous
  Country: JP (occurrence: JP)
  Receive Date: 20190614
  Receipt Date: 20191009
  Transmission Date: 20200122
  Serious: Yes (Other)
  Sender: FDA-Public Use
  Company Number: JP-UCBSA-2019025634

PATIENT
  Age: 4 Decade
  Sex: Female

DRUGS (24)
  1. XYZAL [Suspect]
     Active Substance: LEVOCETIRIZINE DIHYDROCHLORIDE
     Indication: ASTHMA PROPHYLAXIS
     Dosage: UNK UNK, 1D
     Route: 048
  2. URSO [Concomitant]
     Active Substance: URSODIOL
     Indication: ANTIVIRAL PROPHYLAXIS
     Dosage: UNK
  3. MEPTIN AIR [Suspect]
     Active Substance: PROCATEROL HYDROCHLORIDE
     Indication: ASTHMA PROPHYLAXIS
     Dosage: UNK ?G, UNK
     Route: 055
  4. PREDONINE [Suspect]
     Active Substance: PREDNISOLONE
     Dosage: 5 MG, 1D
     Route: 048
     Dates: start: 20180930, end: 20181104
  5. AMBROXOL HYDROCHLORIDE [Concomitant]
     Active Substance: AMBROXOL HYDROCHLORIDE
     Indication: ASTHMA PROPHYLAXIS
     Dosage: UNK
  6. TAKECAB [Concomitant]
     Active Substance: VONOPRAZAN FUMURATE
     Indication: GASTROOESOPHAGEAL REFLUX PROPHYLAXIS
     Dosage: UNK
  7. FLUTIFORM [Suspect]
     Active Substance: FLUTICASONE PROPIONATE\FORMOTEROL FUMARATE
     Indication: ASTHMA PROPHYLAXIS
     Dosage: UNK ?G, UNK
     Route: 055
  8. KIPRES [Concomitant]
     Active Substance: MONTELUKAST SODIUM
     Indication: ASTHMA PROPHYLAXIS
     Dosage: UNK
  9. ONETRAM [Concomitant]
     Active Substance: TRAMADOL HYDROCHLORIDE
     Indication: SYSTEMIC LUPUS ERYTHEMATOSUS
     Dosage: UNK
  10. HIRUDOID [Concomitant]
     Active Substance: GLYCOSAMINOGLYCANS
     Indication: DRY SKIN PROPHYLAXIS
     Dosage: UNK
  11. PREDONINE [Suspect]
     Active Substance: PREDNISOLONE
     Indication: SYSTEMIC LUPUS ERYTHEMATOSUS
     Dosage: 10 MG, 1D
     Route: 048
     Dates: start: 20180904, end: 20180929
  12. PREDONINE [Suspect]
     Active Substance: PREDNISOLONE
     Dosage: 1 MG, 1D
     Route: 048
     Dates: start: 20190129
  13. PREDONINE [Suspect]
     Active Substance: PREDNISOLONE
     Dosage: 3 MG, 1D
     Route: 048
     Dates: start: 20181105, end: 20181202
  14. ALFACALCIDOL [Concomitant]
     Active Substance: ALFACALCIDOL
     Indication: OSTEOPOROSIS PROPHYLAXIS
     Dosage: 1 UNK, UNK
  15. MUCODYNE [Concomitant]
     Active Substance: CARBOCYSTEINE
     Indication: ASTHMA PROPHYLAXIS
     Dosage: UNK
  16. BENLYSTA [Suspect]
     Active Substance: BELIMUMAB
     Indication: SYSTEMIC LUPUS ERYTHEMATOSUS
     Dosage: 200 MG, WE (200 MG EVERY WEEK, 2 TIME IN TOTAL)
     Route: 058
     Dates: start: 20180904, end: 20180912
  17. PREDONINE [Suspect]
     Active Substance: PREDNISOLONE
     Dosage: 2 MG, 1D
     Route: 048
     Dates: start: 20181203, end: 20190128
  18. NEXIUM [Concomitant]
     Active Substance: ESOMEPRAZOLE MAGNESIUM
     Indication: GASTROOESOPHAGEAL REFLUX DISEASE
     Dosage: UNK
  19. VITANEURIN [Concomitant]
     Indication: PROPHYLAXIS
     Dosage: UNK
  20. BENLYSTA [Suspect]
     Active Substance: BELIMUMAB
     Indication: SYSTEMIC LUPUS ERYTHEMATOSUS
     Dosage: 200 MG, WE (200 MG EVERY WEEK, 6 TIMES IN TOTAL)
     Route: 058
     Dates: start: 20181002, end: 20181106
  21. BENLYSTA [Suspect]
     Active Substance: BELIMUMAB
     Dosage: 200 MG, WE (200 MG EVERY WEEK, 1 TIME IN TOTAL)
     Route: 058
     Dates: start: 20181120, end: 20181120
  22. BENLYSTA [Suspect]
     Active Substance: BELIMUMAB
     Dosage: 200 MG, WE (200 MG EVERY WEEK, 4 TIMES IN TOTAL)
     Route: 058
     Dates: start: 20190129, end: 20190218
  23. AIMIX [Concomitant]
     Active Substance: AMLODIPINE BESYLATE\IRBESARTAN
     Indication: HYPERTENSION
     Dosage: UNK UNK, 1D
  24. ASPARA POTASSIUM [Concomitant]
     Active Substance: POTASSIUM ASPARTATE
     Indication: HYPOKALAEMIA
     Dosage: UNK

REACTIONS (5)
  - Pharyngitis [Recovered/Resolved]
  - Gastrooesophageal reflux disease [Recovering/Resolving]
  - Viral upper respiratory tract infection [Recovered/Resolved]
  - Asthma [Recovered/Resolved]
  - Oesophageal candidiasis [Recovered/Resolved]

NARRATIVE: CASE EVENT DATE: 20180918
